FAERS Safety Report 14230882 (Version 1)
Quarter: 2017Q4

REPORT INFORMATION
  Report Type: Spontaneous
  Country: US (occurrence: US)
  Receive Date: 20171128
  Receipt Date: 20171128
  Transmission Date: 20180321
  Serious: No
  Sender: FDA-Public Use
  Company Number: US-JNJFOC-20171112614

PATIENT
  Age: 22 Month
  Sex: Male
  Weight: 11.34 kg

DRUGS (2)
  1. CHILDRENS ZYRTEC [Suspect]
     Active Substance: CETIRIZINE HYDROCHLORIDE
     Route: 065
  2. CHILDRENS ZYRTEC [Suspect]
     Active Substance: CETIRIZINE HYDROCHLORIDE
     Indication: ACCIDENTAL EXPOSURE TO PRODUCT
     Dosage: 2 DRINKS
     Route: 065
     Dates: start: 20171109, end: 20171109

REACTIONS (1)
  - Accidental exposure to product [Unknown]
